FAERS Safety Report 6983830-1 (Version None)
Quarter: 2010Q3

REPORT INFORMATION
  Report Type: 
  Country: None (occurrence: None)
  Receive Date: 20100914
  Receipt Date: 20090325
  Transmission Date: 20110219
  Serious: No
  Sender: FDA-Public Use
  Company Number: US-WYE-H08714009

PATIENT
  Age: 28 Year
  Sex: Male
  Weight: 63.56 kg

DRUGS (2)
  1. ADVIL LIQUI-GELS [Suspect]
     Indication: PYREXIA
     Dosage: 1-2 CAPLETS TWO TIMES
     Route: 048
     Dates: start: 20090324, end: 20090324
  2. VITAMINS [Concomitant]

REACTIONS (1)
  - CHROMATURIA [None]
